FAERS Safety Report 7142715-0 (Version None)
Quarter: 2010Q4

REPORT INFORMATION
  Report Type: 
  Country: None (occurrence: None)
  Receive Date: 20101207
  Receipt Date: 20101125
  Transmission Date: 20110411
  Serious: Yes (Death)
  Sender: FDA-Public Use
  Company Number: SE-WATSON-2010-15492

PATIENT
  Age: 83 Year
  Sex: Male

DRUGS (1)
  1. CHLORPROMAZINE HCL [Suspect]
     Indication: PSYCHOTIC DISORDER
     Dosage: UNK

REACTIONS (1)
  - LIVER INJURY [None]
